FAERS Safety Report 8924748 (Version 1)
Quarter: 2012Q4

REPORT INFORMATION
  Report Type: 
  Country: JP (occurrence: JP)
  Receive Date: 20121126
  Receipt Date: 20121126
  Transmission Date: 20130627
  Serious: Yes (Death)
  Sender: FDA-Public Use
  Company Number: JP-PFIZER INC-2012245580

PATIENT
  Age: 82 Year
  Sex: Female

DRUGS (3)
  1. TORISEL [Suspect]
     Indication: METASTATIC RENAL CELL CARCINOMA
     Dosage: 25 mg, weekly
     Route: 042
     Dates: start: 20120327, end: 20121029
  2. ALDACTONE-A [Concomitant]
     Indication: OEDEMA
     Dosage: 25 mg, 1x/day
     Route: 048
  3. LASIX [Concomitant]
     Indication: OEDEMA
     Dosage: UNK

REACTIONS (5)
  - Pneumonia [Fatal]
  - Disease progression [Unknown]
  - Metastatic renal cell carcinoma [Unknown]
  - Nasopharyngitis [Unknown]
  - Oedema peripheral [Recovered/Resolved]
